FAERS Safety Report 5941620-2 (Version None)
Quarter: 2008Q4

REPORT INFORMATION
  Report Type: 
  Country: None (occurrence: None)
  Receive Date: 20081104
  Receipt Date: 20081104
  Transmission Date: 20090506
  Serious: No
  Sender: FDA-Public Use
  Company Number: None

PATIENT
  Age: 74 Year
  Sex: Female

DRUGS (1)
  1. LYRICA [Suspect]
     Indication: HERPES ZOSTER
     Dosage: 1 TWICE DAILY PO
     Route: 048
     Dates: start: 20070201, end: 20081103

REACTIONS (2)
  - GENERAL SYMPTOM [None]
  - PARAESTHESIA [None]
